FAERS Safety Report 22224831 (Version 2)
Quarter: 2023Q4

REPORT INFORMATION
  Report Type: Spontaneous
  Country: US (occurrence: US)
  Receive Date: 20230418
  Receipt Date: 20231204
  Transmission Date: 20240109
  Serious: No
  Sender: FDA-Public Use
  Company Number: US-ANTARES PHARMA, INC.-2023-SPO-TX-0725

PATIENT

DRUGS (2)
  1. TLANDO [Suspect]
     Active Substance: TESTOSTERONE UNDECANOATE
     Indication: Product used for unknown indication
     Dosage: UNK, UNKNOWN
     Route: 048
  2. XYOSTED [Suspect]
     Active Substance: TESTOSTERONE ENANTHATE
     Indication: Product used for unknown indication
     Dosage: UNK, UNKNOWN
     Route: 058

REACTIONS (2)
  - Back pain [Unknown]
  - Intentional product use issue [Unknown]
